FAERS Safety Report 7097650-3 (Version None)
Quarter: 2010Q4

REPORT INFORMATION
  Report Type: 
  Country: None (occurrence: None)
  Receive Date: 20101112
  Receipt Date: 20101103
  Transmission Date: 20110411
  Serious: Yes (Hospitalization)
  Sender: FDA-Public Use
  Company Number: US-BIOGENIDEC-2010BI036715

PATIENT
  Sex: Female

DRUGS (2)
  1. AVONEX [Suspect]
     Indication: MULTIPLE SCLEROSIS
     Route: 030
     Dates: start: 20070806, end: 20070917
  2. AVONEX [Suspect]
     Route: 030
     Dates: start: 20081217

REACTIONS (3)
  - GASTRIC STENOSIS [None]
  - MUSCLE SPASMS [None]
  - OBSTRUCTION GASTRIC [None]
